FAERS Safety Report 9354962 (Version 1)
Quarter: 2013Q2

REPORT INFORMATION
  Report Type: Spontaneous
  Country: US (occurrence: US)
  Receive Date: 20130619
  Receipt Date: 20130619
  Transmission Date: 20140414
  Serious: No
  Sender: FDA-Public Use
  Company Number: US-BIOGENIDEC-2013BI053786

PATIENT
  Age: 27 Year
  Sex: Male

DRUGS (2)
  1. TYSABRI [Suspect]
     Indication: MULTIPLE SCLEROSIS
     Route: 042
     Dates: start: 20120905
  2. AVONEX [Concomitant]
     Indication: MULTIPLE SCLEROSIS
     Route: 030
     Dates: start: 20100915

REACTIONS (5)
  - Injection site pain [Recovered/Resolved]
  - Infusion site haemorrhage [Recovered/Resolved]
  - Medical device complication [Unknown]
  - Infusion site swelling [Recovered/Resolved]
  - Infusion site extravasation [Unknown]
